FAERS Safety Report 8999087 (Version 1)
Quarter: 2013Q1

REPORT INFORMATION
  Report Type: Spontaneous
  Country: JP (occurrence: JP)
  Receive Date: 20130103
  Receipt Date: 20130103
  Transmission Date: 20140127
  Serious: Yes (Death)
  Sender: FDA-Public Use
  Company Number: JP-SANOFI-AVENTIS-2012SA095129

PATIENT
  Age: 65 Year
  Sex: Male

DRUGS (5)
  1. LANTUS SOLOSTAR [Suspect]
     Indication: TYPE 2 DIABETES MELLITUS
     Dosage: DOSE:30 UNIT(S)
     Route: 058
     Dates: start: 201205
  2. SOLOSTAR [Suspect]
     Indication: DEVICE THERAPY
     Dates: start: 201205
  3. AMLODIN [Concomitant]
     Route: 048
  4. CARDENALIN [Concomitant]
     Route: 048
  5. GLUCOBAY [Concomitant]
     Route: 048

REACTIONS (1)
  - Death [Fatal]
